FAERS Safety Report 5862834-6 (Version None)
Quarter: 2008Q3

REPORT INFORMATION
  Report Type: 
  Country: None (occurrence: None)
  Receive Date: 20080828
  Receipt Date: 20080822
  Transmission Date: 20090109
  Serious: Yes (Hospitalization)
  Sender: FDA-Public Use
  Company Number: A0696646A

PATIENT
  Age: 59 Year
  Sex: Female
  Weight: 79.5 kg

DRUGS (5)
  1. AVANDIA [Suspect]
     Dosage: 4MG PER DAY
     Route: 048
     Dates: start: 20030620, end: 20051201
  2. AVANDAMET [Suspect]
     Route: 048
     Dates: start: 20050128, end: 20050401
  3. TOPROL-XL [Concomitant]
  4. PREFEST [Concomitant]
  5. IRON SUPPLEMENT [Concomitant]

REACTIONS (3)
  - CARDIAC DISORDER [None]
  - CARDIAC FAILURE CONGESTIVE [None]
  - HEART DISEASE CONGENITAL [None]
